FAERS Safety Report 7625037-0 (Version None)
Quarter: 2011Q3

REPORT INFORMATION
  Report Type: 
  Country: None (occurrence: None)
  Receive Date: 20110721
  Receipt Date: 20110711
  Transmission Date: 20111222
  Serious: No
  Sender: FDA-Public Use
  Company Number: US-BIOGENIDEC-2011BI025657

PATIENT
  Age: 58 Year
  Sex: Female

DRUGS (3)
  1. TYLENOL-500 [Concomitant]
     Indication: PREMEDICATION
  2. TYSABRI [Suspect]
     Indication: MULTIPLE SCLEROSIS
     Route: 042
     Dates: start: 20090609
  3. ALLERGY MEDICATION (NOS) [Concomitant]
     Indication: PREMEDICATION

REACTIONS (2)
  - PRURITUS [None]
  - URTICARIA [None]
